FAERS Safety Report 18434148 (Version 1)
Quarter: 2020Q4

REPORT INFORMATION
  Report Type: Report from Study
  Country: DO (occurrence: DO)
  Receive Date: 20201027
  Receipt Date: 20201027
  Transmission Date: 20210114
  Serious: Yes (Death, Other)
  Sender: FDA-Public Use
  Company Number: DO-ASTRAZENECA-2020SF39497

PATIENT
  Age: 29567 Day
  Sex: Female

DRUGS (1)
  1. TAGRISSO [Suspect]
     Active Substance: OSIMERTINIB
     Indication: ILL-DEFINED DISORDER
     Dosage: 80.0MG UNKNOWN
     Route: 048
     Dates: start: 20200702

REACTIONS (4)
  - Haemoglobin decreased [Unknown]
  - Diarrhoea [Unknown]
  - Vomiting [Unknown]
  - Cardio-respiratory arrest [Fatal]

NARRATIVE: CASE EVENT DATE: 20201015
